FAERS Safety Report 15371538 (Version 1)
Quarter: 2018Q3

REPORT INFORMATION
  Report Type: Spontaneous
  Country: IL (occurrence: IL)
  Receive Date: 20180911
  Receipt Date: 20180911
  Transmission Date: 20181010
  Serious: Yes (Hospitalization)
  Sender: FDA-Public Use
  Company Number: IL-SAKK-2018SA246040AA

PATIENT
  Sex: Female

DRUGS (1)
  1. TOUJEO [Suspect]
     Active Substance: INSULIN GLARGINE
     Dosage: ONCE DAILY
     Route: 065

REACTIONS (2)
  - Inflammation [Unknown]
  - Blood glucose increased [Not Recovered/Not Resolved]
